FAERS Safety Report 5505794-X (Version None)
Quarter: 2007Q4

REPORT INFORMATION
  Report Type: 
  Country: None (occurrence: None)
  Receive Date: 20071102
  Receipt Date: 20071026
  Transmission Date: 20080405
  Serious: Yes (Hospitalization)
  Sender: FDA-Public Use
  Company Number: RU-BOEHRINGER INGELHEIM PHARMACEUTICALS, INC.-2007-BP-17564YA

PATIENT
  Sex: Male
  Weight: 87 kg

DRUGS (3)
  1. TAMSULOSIN OCAS [Suspect]
     Indication: PROSTATISM
     Route: 048
     Dates: start: 20070605, end: 20070705
  2. NITROSORBIDE [Concomitant]
     Indication: MYOCARDIAL ISCHAEMIA
     Route: 048
     Dates: start: 20000101
  3. ATENOLOL [Concomitant]
     Indication: HYPERTENSION
     Route: 048
     Dates: start: 20060101

REACTIONS (1)
  - URINARY RETENTION [None]
